FAERS Safety Report 5500349-5 (Version None)
Quarter: 2007Q4

REPORT INFORMATION
  Report Type: 
  Country: None (occurrence: None)
  Receive Date: 20071029
  Receipt Date: 20071018
  Transmission Date: 20080405
  Serious: Yes (Other)
  Sender: FDA-Public Use
  Company Number: US-AVENTIS-200717412US

PATIENT
  Sex: Female
  Weight: 86.36 kg

DRUGS (5)
  1. LOVENOX [Suspect]
     Dosage: DOSE: UNK
  2. WARFARIN SODIUM [Suspect]
     Dosage: DOSE: UNK
  3. WARFARIN SODIUM [Suspect]
  4. LISINOPRIL [Suspect]
     Dosage: DOSE: UNK
  5. COREG [Suspect]
     Dosage: DOSE: UNK

REACTIONS (5)
  - AMNESIA [None]
  - DRUG EXPOSURE DURING PREGNANCY [None]
  - DRUG INEFFECTIVE [None]
  - EMBOLISM [None]
  - MYOCARDIAL INFARCTION [None]
